FAERS Safety Report 11501468 (Version 2)
Quarter: 2015Q4

REPORT INFORMATION
  Report Type: Spontaneous
  Country: VE (occurrence: VE)
  Receive Date: 20150914
  Receipt Date: 20151001
  Transmission Date: 20160304
  Serious: Yes (Hospitalization, Other)
  Sender: FDA-Public Use
  Company Number: VE-VALIDUS PHARMACEUTICALS LLC-VE-2015VAL000562

PATIENT

DRUGS (4)
  1. SANIDOL [Concomitant]
     Dosage: UNK
  2. LOPRESSOR [Suspect]
     Active Substance: METOPROLOL TARTRATE
     Indication: HYPERTENSION
     Dosage: 200 MG, QD
     Route: 048
     Dates: start: 2010
  3. APROVEL [Concomitant]
     Active Substance: IRBESARTAN
     Dosage: UNK
     Dates: start: 2010
  4. LOPRESSOR [Suspect]
     Active Substance: METOPROLOL TARTRATE
     Indication: INFARCTION

REACTIONS (5)
  - Expired product administered [Unknown]
  - Concomitant disease progression [Unknown]
  - Angina pectoris [Unknown]
  - Angina pectoris [Unknown]
  - Coronary artery occlusion [Unknown]

NARRATIVE: CASE EVENT DATE: 2012
